FAERS Safety Report 24237755 (Version 2)
Quarter: 2025Q3

REPORT INFORMATION
  Report Type: Report from Study
  Country: JP (occurrence: JP)
  Receive Date: 20240822
  Receipt Date: 20250702
  Transmission Date: 20251021
  Serious: Yes (Other)
  Sender: ABBVIE
  Company Number: JP-TAKEDA-2024TJP009279

PATIENT
  Age: 61 Year
  Sex: Male

DRUGS (6)
  1. LEUPROLIDE ACETATE [Suspect]
     Active Substance: LEUPROLIDE ACETATE
     Indication: Bulbospinal muscular atrophy congenital
     Dosage: 11.25 MILLIGRAM, Q3MONTHS
     Route: 058
     Dates: start: 20230303
  2. MOBIC [Concomitant]
     Active Substance: MELOXICAM
     Indication: Back pain
     Route: 065
     Dates: start: 20230526, end: 20230721
  3. CALONAL [Concomitant]
     Active Substance: ACETAMINOPHEN
     Indication: Back pain
     Route: 065
     Dates: start: 20230404, end: 20230526
  4. FUDOSTEINE [Concomitant]
     Active Substance: FUDOSTEINE
     Indication: Bronchitis chronic
     Route: 065
     Dates: start: 20230721
  5. SHAKUYAKUKANZOTO [Concomitant]
     Active Substance: HERBALS
     Indication: Muscle spasms
     Route: 065
     Dates: start: 20231013
  6. CELECOXIB [Concomitant]
     Active Substance: CELECOXIB
     Indication: Product used for unknown indication
     Route: 065
     Dates: start: 20230303, end: 20230414

REACTIONS (2)
  - Diabetes mellitus [Not Recovered/Not Resolved]
  - Palpitations [Recovered/Resolved]

NARRATIVE: CASE EVENT DATE: 20240426
